FAERS Safety Report 8548064-8 (Version None)
Quarter: 2012Q3

REPORT INFORMATION
  Report Type: 
  Country: None (occurrence: None)
  Receive Date: 20120730
  Receipt Date: 20120720
  Transmission Date: 20120928
  Serious: Yes (Other)
  Sender: FDA-Public Use
  Company Number: BR-ROCHE-1073283

PATIENT
  Sex: Female

DRUGS (1)
  1. XOLAIR [Suspect]
     Indication: ASTHMA
     Route: 065
     Dates: start: 20110101, end: 20120401

REACTIONS (11)
  - INSOMNIA [None]
  - HEADACHE [None]
  - ASTHMA [None]
  - NERVOUSNESS [None]
  - GRIP STRENGTH DECREASED [None]
  - MYALGIA [None]
  - HEART RATE INCREASED [None]
  - MALAISE [None]
  - GAIT DISTURBANCE [None]
  - ASPHYXIA [None]
  - FATIGUE [None]
